FAERS Safety Report 16216578 (Version 1)
Quarter: 2019Q2

REPORT INFORMATION
  Report Type: Spontaneous
  Country: LT (occurrence: LT)
  Receive Date: 20190419
  Receipt Date: 20190419
  Transmission Date: 20190711
  Serious: Yes (Life-Threatening, Hospitalization)
  Sender: FDA-Public Use
  Company Number: LT-PFIZER INC-2019166463

PATIENT
  Age: 73 Year
  Sex: Female

DRUGS (2)
  1. ALPRAZOLAM. [Suspect]
     Active Substance: ALPRAZOLAM
     Dosage: UNK
     Route: 048
     Dates: end: 20190309
  2. INSULIN INJECTION [Concomitant]
     Active Substance: INSULIN NOS

REACTIONS (4)
  - Loss of consciousness [Recovering/Resolving]
  - Drug abuse [Unknown]
  - Overdose [Unknown]
  - Foaming at mouth [Recovering/Resolving]

NARRATIVE: CASE EVENT DATE: 20190309
